FAERS Safety Report 6307746-9 (Version None)
Quarter: 2009Q3

REPORT INFORMATION
  Report Type: 
  Country: None (occurrence: None)
  Receive Date: 20090812
  Receipt Date: 20090812
  Transmission Date: 20100115
  Serious: No
  Sender: FDA-Public Use
  Company Number: None

PATIENT
  Sex: Female
  Weight: 82.1011 kg

DRUGS (2)
  1. FENTANYL-50 [Suspect]
     Indication: ARTHRITIS
     Dosage: 50 MCG 1 Q72HR TRANSDERMAL
     Route: 062
     Dates: start: 20090701, end: 20090801
  2. FENTANYL-50 [Suspect]
     Indication: PAIN
     Dosage: 50 MCG 1 Q72HR TRANSDERMAL
     Route: 062
     Dates: start: 20090701, end: 20090801

REACTIONS (4)
  - APPLICATION SITE IRRITATION [None]
  - APPLICATION SITE RASH [None]
  - DEVICE ADHESION ISSUE [None]
  - PRODUCT SUBSTITUTION ISSUE [None]
